FAERS Safety Report 8384975-4 (Version None)
Quarter: 2012Q2

REPORT INFORMATION
  Report Type: 
  Country: None (occurrence: None)
  Receive Date: 20120524
  Receipt Date: 20120518
  Transmission Date: 20120825
  Serious: Yes (Other)
  Sender: FDA-Public Use
  Company Number: AU-ROCHE-1070505

PATIENT
  Sex: Male

DRUGS (2)
  1. ZELBORAF [Suspect]
  2. ZELBORAF [Suspect]
     Indication: METASTATIC MALIGNANT MELANOMA
     Dates: start: 20120328

REACTIONS (3)
  - SKIN MASS [None]
  - PRURITUS [None]
  - KERATOSIS PILARIS [None]
